FAERS Safety Report 14956537 (Version 2)
Quarter: 2018Q2

REPORT INFORMATION
  Report Type: Spontaneous
  Country: US (occurrence: US)
  Receive Date: 20180531
  Receipt Date: 20180604
  Transmission Date: 20180711
  Serious: No
  Sender: FDA-Public Use
  Company Number: US-PFIZER INC-2018222895

PATIENT
  Age: 57 Year
  Sex: Female
  Weight: 62.86 kg

DRUGS (1)
  1. CHANTIX [Suspect]
     Active Substance: VARENICLINE TARTRATE
     Indication: SMOKING CESSATION THERAPY
     Dosage: ONCE A DAY BY MOUTH
     Route: 048

REACTIONS (4)
  - Muscular weakness [Unknown]
  - Insomnia [Unknown]
  - Total lung capacity decreased [Unknown]
  - Dehydration [Unknown]
